FAERS Safety Report 4290371-1 (Version None)
Quarter: 2004Q1

REPORT INFORMATION
  Report Type: 
  Country: None (occurrence: None)
  Receive Date: 20040209
  Receipt Date: 19981102
  Transmission Date: 20041129
  Serious: Yes (Death)
  Sender: FDA-Public Use
  Company Number: KII-1998-0006127

PATIENT
  Sex: Male

DRUGS (1)
  1. OXYCODONE HCL [Suspect]

REACTIONS (2)
  - LUNG INFECTION [None]
  - OVERDOSE [None]
